FAERS Safety Report 9727091 (Version 1)
Quarter: 2013Q4

REPORT INFORMATION
  Report Type: Spontaneous
  Country: TR (occurrence: None)
  Receive Date: 20131129
  Receipt Date: 20131129
  Transmission Date: 20140711
  Serious: Yes (Life-Threatening, Hospitalization)
  Sender: FDA-Public Use
  Company Number: 2013P1021398

PATIENT
  Age: 29 Year
  Sex: Female

DRUGS (2)
  1. METFORMIN [Suspect]
  2. ALCOHOL (ETHANOL) [Suspect]

REACTIONS (6)
  - Suicide attempt [None]
  - Haemodialysis [None]
  - Vomiting [None]
  - Alanine aminotransferase increased [None]
  - Aspartate aminotransferase increased [None]
  - Blood ethanol increased [None]
